FAERS Safety Report 10584486 (Version 1)
Quarter: 2014Q4

REPORT INFORMATION
  Report Type: Spontaneous
  Country: US (occurrence: US)
  Receive Date: 20141114
  Receipt Date: 20141114
  Transmission Date: 20150529
  Serious: Yes (Other)
  Sender: FDA-Public Use
  Company Number: US-ALKERMES INC.-ALK-2014-003813

PATIENT

DRUGS (2)
  1. VIVITROL [Suspect]
     Active Substance: NALTREXONE
     Indication: DRUG DEPENDENCE
     Dosage: 380 MG, UNK
     Route: 030
     Dates: start: 201404, end: 201409
  2. VIVITROL [Suspect]
     Active Substance: NALTREXONE
     Dosage: UNK

REACTIONS (4)
  - Pain [Unknown]
  - Drug dose omission [Not Recovered/Not Resolved]
  - Alcohol use [Unknown]
  - Cardiac operation [Recovered/Resolved]

NARRATIVE: CASE EVENT DATE: 2014
